FAERS Safety Report 9983978 (Version 2)
Quarter: 2014Q1

REPORT INFORMATION
  Report Type: Report from Study
  Country: US (occurrence: US)
  Receive Date: 20140307
  Receipt Date: 20140307
  Transmission Date: 20141002
  Serious: No
  Sender: FDA-Public Use
  Company Number: US-ABBVIE-13P-163-1100443-00

PATIENT
  Age: 46 Year
  Sex: Female

DRUGS (14)
  1. HUMIRA [Suspect]
     Indication: CROHN^S DISEASE
     Dosage: LOADING DOSE
     Dates: start: 20130514
  2. HUMIRA [Suspect]
     Dates: start: 20130917
  3. TYLENOL [Concomitant]
     Indication: ARTHRALGIA
     Dosage: 2-4 DAY AS NEEDED
  4. LIALDA [Concomitant]
     Indication: CROHN^S DISEASE
  5. ZOLOFT [Concomitant]
     Indication: DEPRESSION
  6. ZOLOFT [Concomitant]
     Indication: ANXIETY
  7. MULTIVITAMIN [Concomitant]
     Indication: PRODUCT USED FOR UNKNOWN INDICATION
  8. VITAMIN C [Concomitant]
     Indication: VITAMIN SUPPLEMENTATION
     Dosage: ONE A DAY
  9. CALCIUM +D [Concomitant]
     Indication: NUTRITIONAL SUPPLEMENTATION
     Dosage: ONE A DAY
  10. MELATONIN [Concomitant]
     Indication: INSOMNIA
     Dosage: ONE AT BED TIME
  11. GABAPENTIN [Concomitant]
     Indication: CROHN^S DISEASE
  12. TRAMADOL [Concomitant]
     Indication: CROHN^S DISEASE
  13. MULTIVITAMIN [Concomitant]
     Indication: PRODUCT USED FOR UNKNOWN INDICATION
  14. B COMPLEX [Concomitant]
     Indication: PRODUCT USED FOR UNKNOWN INDICATION

REACTIONS (10)
  - Sinus headache [Not Recovered/Not Resolved]
  - Nausea [Not Recovered/Not Resolved]
  - Headache [Not Recovered/Not Resolved]
  - Injection site bruising [Not Recovered/Not Resolved]
  - Sinus headache [Recovering/Resolving]
  - Nasopharyngitis [Recovering/Resolving]
  - Tooth infection [Recovering/Resolving]
  - Tooth fracture [Recovering/Resolving]
  - Sinus congestion [Recovering/Resolving]
  - Pain [Recovering/Resolving]
